FAERS Safety Report 9104991 (Version 3)
Quarter: 2013Q3

REPORT INFORMATION
  Report Type: Spontaneous
  Country: ES (occurrence: ES)
  Receive Date: 20130220
  Receipt Date: 20130905
  Transmission Date: 20140515
  Serious: Yes (Death, Hospitalization, Other)
  Sender: FDA-Public Use
  Company Number: ES-AMGEN-ESPSP2013010404

PATIENT
  Age: 3 Month
  Sex: Female

DRUGS (7)
  1. ARANESP [Suspect]
     Indication: PRODUCT USED FOR UNKNOWN INDICATION
     Dosage: 20 UNK, QWK
     Route: 064
     Dates: start: 20120908
  2. ARANESP [Suspect]
     Indication: PRODUCT USED FOR UNKNOWN INDICATION
     Dosage: 20 UNK, QWK
     Route: 064
     Dates: start: 20120908
  3. CARIBAN [Concomitant]
     Route: 064
  4. FOLIC ACID [Concomitant]
     Dosage: 2.5 UNK, QD
     Route: 064
     Dates: start: 201208
  5. VENOFER [Concomitant]
     Dosage: 1 DF, QMO
     Route: 064
     Dates: start: 20120908
  6. TRANDATE [Concomitant]
     Dosage: UNK UNK, Q8H
     Route: 064
     Dates: start: 20121001
  7. METHYLDOPA [Concomitant]
     Dosage: UNK UNK, Q8H
     Route: 064
     Dates: start: 20120924, end: 20120927

REACTIONS (4)
  - Death [Fatal]
  - Bronchopulmonary dysplasia [Unknown]
  - Neonatal respiratory distress syndrome [Unknown]
  - Premature baby [Unknown]
